FAERS Safety Report 10585239 (Version 1)
Quarter: 2014Q4

REPORT INFORMATION
  Report Type: Spontaneous
  Country: TR (occurrence: None)
  Receive Date: 20141113
  Receipt Date: 20141113
  Transmission Date: 20150529
  Serious: Yes (Hospitalization)
  Sender: FDA-Public Use
  Company Number: TR-ZYDUS-005320

PATIENT
  Age: 6 Month
  Sex: Female

DRUGS (1)
  1. TRAMADOL (TRAMADOL) [Suspect]
     Active Substance: TRAMADOL

REACTIONS (4)
  - Somnolence [None]
  - Toxicity to various agents [None]
  - Transaminases increased [None]
  - Medication error [None]
